FAERS Safety Report 5150119-5 (Version None)
Quarter: 2006Q4

REPORT INFORMATION
  Report Type: 
  Country: None (occurrence: None)
  Receive Date: 20061114
  Receipt Date: 20060724
  Transmission Date: 20070319
  Serious: Yes (Hospitalization)
  Sender: FDA-Public Use
  Company Number: FR-ABBOTT-06P-056-0338888-00

PATIENT
  Sex: Female

DRUGS (6)
  1. DEPAKENE [Suspect]
     Indication: AFFECTIVE DISORDER
     Route: 048
     Dates: start: 20020101, end: 20060712
  2. DEPAKENE [Suspect]
  3. OLANZAPINE [Concomitant]
     Indication: PSYCHOTIC DISORDER
     Route: 048
     Dates: end: 20060601
  4. LITHIUM CARBONATE [Concomitant]
     Indication: AFFECTIVE DISORDER
  5. ZOPICLONE [Concomitant]
     Indication: INSOMNIA
     Route: 048
  6. HEPTAMYL [Concomitant]
     Indication: HYPOTENSION
     Route: 048

REACTIONS (5)
  - BALANCE DISORDER [None]
  - CONFUSIONAL STATE [None]
  - DISORIENTATION [None]
  - DISTURBANCE IN ATTENTION [None]
  - TOXIC INDUCED ENCEPHALOPATHY [None]
